FAERS Safety Report 21155915 (Version 1)
Quarter: 2022Q3

REPORT INFORMATION
  Report Type: Spontaneous
  Country: JP (occurrence: JP)
  Receive Date: 20220801
  Receipt Date: 20220801
  Transmission Date: 20221027
  Serious: Yes (Hospitalization)
  Sender: FDA-Public Use
  Company Number: JP-JNJFOC-20220759273

PATIENT
  Age: 48 Year
  Sex: Female

DRUGS (27)
  1. UPTRAVI [Suspect]
     Active Substance: SELEXIPAG
     Indication: Systemic scleroderma
     Route: 048
     Dates: start: 20171010, end: 20171106
  2. UPTRAVI [Suspect]
     Active Substance: SELEXIPAG
     Route: 048
     Dates: start: 20171107, end: 20171123
  3. UPTRAVI [Suspect]
     Active Substance: SELEXIPAG
     Route: 048
     Dates: start: 20171124, end: 20171220
  4. UPTRAVI [Suspect]
     Active Substance: SELEXIPAG
     Route: 048
     Dates: start: 20171221, end: 20180131
  5. UPTRAVI [Suspect]
     Active Substance: SELEXIPAG
     Route: 048
     Dates: start: 20180201
  6. TRACLEER [Suspect]
     Active Substance: BOSENTAN
     Indication: Systemic scleroderma
     Route: 048
     Dates: end: 20181020
  7. LANSOPRAZOLE [Suspect]
     Active Substance: LANSOPRAZOLE
     Indication: Product used for unknown indication
     Route: 065
     Dates: end: 20181020
  8. MOSAPRIDE CITRATE [Suspect]
     Active Substance: MOSAPRIDE CITRATE
     Indication: Product used for unknown indication
     Route: 065
     Dates: end: 20181020
  9. ASPIRIN [Suspect]
     Active Substance: ASPIRIN
     Indication: Product used for unknown indication
     Route: 065
     Dates: end: 20181020
  10. ADCIRCA [Concomitant]
     Active Substance: TADALAFIL
     Indication: Systemic scleroderma
  11. TRAMADOL [Concomitant]
     Active Substance: TRAMADOL
     Indication: Prophylaxis
  12. LIMAPROST [Concomitant]
     Active Substance: LIMAPROST
  13. BERAPROST SODIUM [Concomitant]
     Active Substance: BERAPROST SODIUM
     Indication: Systemic scleroderma
  14. PREDONINE [Concomitant]
     Active Substance: PREDNISOLONE
  15. CILOSTAZOL [Concomitant]
     Active Substance: CILOSTAZOL
  16. SARPOGRELATE HYDROCHLORIDE [Concomitant]
     Active Substance: SARPOGRELATE HYDROCHLORIDE
  17. ALLOID G [Concomitant]
     Active Substance: SODIUM ALGINATE
  18. CELLCEPT [Concomitant]
     Active Substance: MYCOPHENOLATE MOFETIL
  19. BIFIDOBACTERIUM SPP. [Concomitant]
     Active Substance: BIFIDOBACTERIUM SPP.
  20. VONOPRAZAN FUMARATE [Concomitant]
     Active Substance: VONOPRAZAN FUMARATE
  21. SULFAMETHOXAZOLE\TRIMETHOPRIM [Concomitant]
     Active Substance: SULFAMETHOXAZOLE\TRIMETHOPRIM
     Indication: Prophylaxis
  22. OPSUMIT [Concomitant]
     Active Substance: MACITENTAN
     Indication: Systemic scleroderma
  23. TRIMEBUTINE MALEATE [Concomitant]
     Active Substance: TRIMEBUTINE MALEATE
  24. FERROUS SULFATE [Concomitant]
     Active Substance: FERROUS SULFATE
  25. ZINC ACETATE [Concomitant]
     Active Substance: ZINC ACETATE
  26. ACTEMRA [Concomitant]
     Active Substance: TOCILIZUMAB
  27. BENLYSTA [Concomitant]
     Active Substance: BELIMUMAB

REACTIONS (1)
  - Pancytopenia [Not Recovered/Not Resolved]

NARRATIVE: CASE EVENT DATE: 20180830
